FAERS Safety Report 15610734 (Version 1)
Quarter: 2018Q4

REPORT INFORMATION
  Report Type: Spontaneous
  Country: US (occurrence: US)
  Receive Date: 20181113
  Receipt Date: 20181113
  Transmission Date: 20190205
  Serious: No
  Sender: FDA-Public Use
  Company Number: US-ROCHE-2049999

PATIENT
  Sex: Female
  Weight: 125.3 kg

DRUGS (6)
  1. INSULIN [Concomitant]
     Active Substance: INSULIN NOS
     Indication: DIABETES MELLITUS
  2. GABAPENTIN. [Concomitant]
     Active Substance: GABAPENTIN
     Dosage: BEEN TAKING FOR YEARS
     Route: 048
  3. NOVOLOG [Concomitant]
     Active Substance: INSULIN ASPART
     Indication: DIABETES MELLITUS
     Dosage: AT NIGHT. BEEN ON A LONG, LONG TIME
     Route: 058
  4. LUCENTIS [Suspect]
     Active Substance: RANIBIZUMAB
     Indication: NEOVASCULAR AGE-RELATED MACULAR DEGENERATION
     Dosage: STARTED IN APRIL OR MAY 2015
     Route: 031
  5. ATORVASTATIN [Concomitant]
     Active Substance: ATORVASTATIN
     Dosage: BEEN TAKING FOR YEARS
     Route: 048
  6. KLOR-CON [Concomitant]
     Active Substance: POTASSIUM CHLORIDE
     Dosage: BEEN TAKING FOR YEARS
     Route: 048

REACTIONS (2)
  - Vision blurred [Unknown]
  - Somnolence [Unknown]

NARRATIVE: CASE EVENT DATE: 2015
